FAERS Safety Report 4294083-X (Version None)
Quarter: 2004Q1

REPORT INFORMATION
  Report Type: 
  Country: None (occurrence: None)
  Receive Date: 20040211
  Receipt Date: 20040202
  Transmission Date: 20041129
  Serious: Yes (Hospitalization)
  Sender: FDA-Public Use
  Company Number: 2004EU000256

PATIENT
  Age: 35 Year
  Sex: Female

DRUGS (2)
  1. FK506 (TACROLIMUS) FORMULATION UNKNOWN [Suspect]
     Indication: RENAL TRANSPLANT
     Dosage: 4 MG, BID; 2 MG, BID
     Route: 065
  2. MYCOPHENOLATE MOFETIL [Concomitant]

REACTIONS (10)
  - CLONIC CONVULSION [None]
  - DIARRHOEA [None]
  - FOOD POISONING [None]
  - GASTROINTESTINAL DISORDER [None]
  - HYPERREFLEXIA [None]
  - HYPOMAGNESAEMIA [None]
  - HYPOPHOSPHATAEMIA [None]
  - NEUROTOXICITY [None]
  - RENAL DISORDER [None]
  - TREMOR [None]
